FAERS Safety Report 11871278 (Version 1)
Quarter: 2015Q4

REPORT INFORMATION
  Report Type: Spontaneous
  Country: MY (occurrence: MY)
  Receive Date: 20151228
  Receipt Date: 20151228
  Transmission Date: 20160305
  Serious: Yes (Life-Threatening, Hospitalization)
  Sender: FDA-Public Use
  Company Number: MY-MYLANLABS-2015M1047046

PATIENT

DRUGS (1)
  1. WARFARIN [Suspect]
     Active Substance: WARFARIN
     Indication: HEART VALVE REPLACEMENT
     Route: 065

REACTIONS (4)
  - Peritoneal haemorrhage [Unknown]
  - Hypovolaemic shock [Unknown]
  - Ovarian cyst ruptured [Unknown]
  - Ovarian cyst [Unknown]
